FAERS Safety Report 5625112-6 (Version None)
Quarter: 2008Q1

REPORT INFORMATION
  Report Type: 
  Country: None (occurrence: None)
  Receive Date: 20080213
  Receipt Date: 20070425
  Transmission Date: 20080703
  Serious: No
  Sender: FDA-Public Use
  Company Number: US-BOEHRINGER INGELHEIM GMBH, GERMANY-2007-BP-05708BP

PATIENT
  Sex: Male

DRUGS (1)
  1. MELOXICAM [Suspect]

REACTIONS (2)
  - BALANCE DISORDER [None]
  - FALL [None]
